FAERS Safety Report 15569169 (Version 2)
Quarter: 2019Q3

REPORT INFORMATION
  Report Type: Spontaneous
  Country: US (occurrence: US)
  Receive Date: 20181031
  Receipt Date: 20190819
  Transmission Date: 20191004
  Serious: No
  Sender: FDA-Public Use
  Company Number: US-BIOGEN-2018BI00643897

PATIENT
  Sex: Female

DRUGS (1)
  1. TYSABRI [Suspect]
     Active Substance: NATALIZUMAB
     Indication: MULTIPLE SCLEROSIS
     Route: 050
     Dates: start: 20090807

REACTIONS (2)
  - Prescribed underdose [Not Recovered/Not Resolved]
  - Confusional state [Unknown]
